FAERS Safety Report 6601933-8 (Version None)
Quarter: 2010Q1

REPORT INFORMATION
  Report Type: 
  Country: None (occurrence: None)
  Receive Date: 20100225
  Receipt Date: 20100212
  Transmission Date: 20100710
  Serious: Yes (Hospitalization)
  Sender: FDA-Public Use
  Company Number: SE-ROCHE-685175

PATIENT
  Sex: Male

DRUGS (3)
  1. PEG-INTERFERON ALFA 2A (RO 25-8310) [Suspect]
     Route: 058
     Dates: start: 20090303
  2. RIBAVIRIN [Suspect]
     Route: 048
     Dates: start: 20090303
  3. TROMBYL [Concomitant]
     Dates: start: 20090303

REACTIONS (2)
  - PARALYSIS [None]
  - PROSTATITIS [None]
